FAERS Safety Report 8113235-1 (Version None)
Quarter: 2012Q1

REPORT INFORMATION
  Report Type: 
  Country: None (occurrence: None)
  Receive Date: 20120203
  Receipt Date: 20120112
  Transmission Date: 20120608
  Serious: Yes (Life-Threatening, Hospitalization, Disabling, Other)
  Sender: FDA-Public Use
  Company Number: US-PFIZER INC-K200200177

PATIENT
  Sex: Female
  Weight: 104 kg

DRUGS (32)
  1. REZULIN [Suspect]
     Indication: DIABETES MELLITUS
     Dosage: 300 MG, 2X/DAY
     Dates: start: 19970301, end: 19971201
  2. PRECOSE [Concomitant]
     Dosage: UNK
     Dates: start: 19970813
  3. PREMARIN [Concomitant]
     Dosage: UNK
     Dates: start: 19920101
  4. PROCARDIA [Concomitant]
     Dosage: UNK
     Dates: start: 19960901
  5. GLUCOPHAGE [Suspect]
     Dosage: UNK
     Dates: start: 19991214
  6. LASIX [Concomitant]
     Dosage: UNK
     Dates: start: 19940701
  7. GLUCOTROL XL [Suspect]
     Indication: DIABETES MELLITUS
     Dosage: 10 MG, 2X/DAY
     Route: 048
     Dates: end: 19980924
  8. NPH INSULIN [Concomitant]
     Dosage: UNK
     Route: 058
     Dates: start: 19901201
  9. DEMADEX [Concomitant]
     Dosage: UNK
     Dates: start: 20001111
  10. NIACIN [Concomitant]
     Dosage: UNK
     Dates: start: 20001111
  11. REZULIN [Suspect]
     Dosage: 400 MG, 1X/DAY
     Dates: start: 19980113, end: 19980427
  12. LOPID [Suspect]
     Indication: BLOOD TRIGLYCERIDES INCREASED
     Dosage: 600 MG, 2X/DAY
     Dates: start: 19941001, end: 19980924
  13. GLUCOPHAGE [Suspect]
     Dosage: UNK
     Route: 048
     Dates: start: 19990501, end: 19991213
  14. HUMALOG [Concomitant]
     Dosage: UNK
     Dates: start: 19901201
  15. ZAROXOLYN [Concomitant]
     Dosage: UNK
  16. REZULIN [Suspect]
     Dosage: 200 MG, 1X/DAY
     Dates: start: 19971202, end: 19980112
  17. TRICOR [Concomitant]
     Dosage: UNK
     Dates: start: 20000922
  18. TIMOPTIC-XE [Concomitant]
     Dosage: UNK
     Dates: start: 19960601
  19. NIZORAL [Concomitant]
     Dosage: UNK
     Dates: start: 19970813
  20. AMOXIL [Concomitant]
     Dosage: UNK
     Dates: start: 19970924
  21. LAC-HYDRIN [Concomitant]
     Dosage: UNK
     Route: 061
  22. ALTACE [Suspect]
     Dosage: 2.5 MG, 1X/DAY
     Route: 048
     Dates: start: 19980401, end: 19980924
  23. PREGABALIN [Suspect]
     Indication: DIABETIC NEPHROPATHY
     Dosage: 600 MG, 1X/DAY
     Route: 048
  24. POTASSIUM CHLORIDE [Concomitant]
     Dosage: UNK
     Dates: start: 19960901
  25. PREDNISONE [Concomitant]
     Dosage: UNK
  26. DIPROLENE AF [Concomitant]
     Dosage: UNK
  27. CATAPRES [Concomitant]
     Dosage: UNK
     Dates: start: 20001111
  28. REZULIN [Suspect]
     Dosage: 600 MG, 1X/DAY
     Dates: start: 19980428, end: 19980715
  29. ZOCOR [Suspect]
     Indication: LIPIDS
     Dosage: 10 MG, 1X/DAY
     Route: 048
     Dates: start: 19931001, end: 19980924
  30. GLUCOPHAGE [Suspect]
     Indication: DIABETES MELLITUS
     Dosage: 500 MG, 2X/DAY
     Route: 048
     Dates: start: 19970301, end: 19980924
  31. METAMUCIL-2 [Concomitant]
     Dosage: UNK
     Dates: start: 19990301
  32. ASPIRIN [Concomitant]
     Dosage: UNK
     Dates: start: 20001111

REACTIONS (39)
  - HEPATOMEGALY [None]
  - ANXIETY [None]
  - THROMBOCYTOPENIA [None]
  - DYSPHAGIA [None]
  - CARDIOMEGALY [None]
  - CONSTIPATION [None]
  - NODAL OSTEOARTHRITIS [None]
  - HEPATOTOXICITY [None]
  - MASS [None]
  - ECZEMA [None]
  - FAECAL INCONTINENCE [None]
  - PHARYNGITIS [None]
  - JAUNDICE CHOLESTATIC [None]
  - BILE DUCT STONE [None]
  - PANCREATITIS [None]
  - BILIARY CIRRHOSIS [None]
  - VENOUS INSUFFICIENCY [None]
  - TOXICOLOGIC TEST [None]
  - AUTOIMMUNE THYROIDITIS [None]
  - FOOT DEFORMITY [None]
  - FUNCTIONAL GASTROINTESTINAL DISORDER [None]
  - DIZZINESS [None]
  - SHOCK HYPOGLYCAEMIC [None]
  - ATROPHY [None]
  - RENAL IMPAIRMENT [None]
  - DIABETES MELLITUS [None]
  - UPPER RESPIRATORY TRACT INFECTION [None]
  - ONYCHOMYCOSIS [None]
  - PAROTID GLAND ENLARGEMENT [None]
  - CUSHINGOID [None]
  - PRURITUS [None]
  - CONTUSION [None]
  - LEFT VENTRICULAR DYSFUNCTION [None]
  - TRICUSPID VALVE INCOMPETENCE [None]
  - BLOOD TRIGLYCERIDES INCREASED [None]
  - NEUROPATHY PERIPHERAL [None]
  - WEIGHT DECREASED [None]
  - RASH [None]
  - GASTROOESOPHAGEAL REFLUX DISEASE [None]
